FAERS Safety Report 5550989-2 (Version None)
Quarter: 2007Q4

REPORT INFORMATION
  Report Type: 
  Country: None (occurrence: None)
  Receive Date: 20071212
  Receipt Date: 20071207
  Transmission Date: 20080405
  Serious: Yes (Hospitalization, Disabling)
  Sender: FDA-Public Use
  Company Number: US-MERCK-0707USA04747

PATIENT
  Age: 43 Year
  Sex: Female

DRUGS (4)
  1. FOSAMAX [Suspect]
     Indication: RESORPTION BONE INCREASED
     Route: 048
     Dates: start: 20020101, end: 20040501
  2. FOSAMAX [Suspect]
     Route: 048
     Dates: start: 19990101, end: 20020101
  3. CORTICOSTEROIDS (UNSPECIFIED) [Concomitant]
     Route: 065
     Dates: start: 19980301, end: 20070101
  4. ESTROGENS (UNSPECIFIED) [Concomitant]
     Route: 065
     Dates: start: 19980301, end: 20030101

REACTIONS (13)
  - ACUTE HEPATIC FAILURE [None]
  - ADRENAL DISORDER [None]
  - APPENDICITIS [None]
  - CHEST PAIN [None]
  - DENTAL CARIES [None]
  - HYPERSPLENISM [None]
  - LIVER DISORDER [None]
  - MULTIPLE INJURIES [None]
  - RENAL FAILURE ACUTE [None]
  - RESORPTION BONE INCREASED [None]
  - SICKLE CELL ANAEMIA WITH CRISIS [None]
  - TOOTH FRACTURE [None]
  - TOOTHACHE [None]
